FAERS Safety Report 5483932-5 (Version None)
Quarter: 2007Q4

REPORT INFORMATION
  Report Type: 
  Country: None (occurrence: None)
  Receive Date: 20071012
  Receipt Date: 20071003
  Transmission Date: 20080405
  Serious: Yes (Other)
  Sender: FDA-Public Use
  Company Number: US-AVENTIS-200717046US

PATIENT
  Age: 56 Year
  Sex: Female

DRUGS (1)
  1. LASIX [Suspect]
     Dosage: DOSE: UNK

REACTIONS (2)
  - PROTEIN URINE PRESENT [None]
  - RENAL FAILURE [None]
